FAERS Safety Report 12521442 (Version 2)
Quarter: 2016Q3

REPORT INFORMATION
  Report Type: Report from Study
  Country: DK (occurrence: DK)
  Receive Date: 20160701
  Receipt Date: 20160718
  Transmission Date: 20161109
  Serious: Yes (Other)
  Sender: FDA-Public Use
  Company Number: DK-CELGENEUS-DNK-2016064667

PATIENT
  Age: 72 Year
  Sex: Female
  Weight: 59 kg

DRUGS (19)
  1. ELTROXIN [Concomitant]
     Active Substance: LEVOTHYROXINE
     Dosage: 320 MICROGRAM
     Route: 065
     Dates: start: 20140211
  2. KALEORID [Concomitant]
     Active Substance: POTASSIUM CHLORIDE
     Dosage: 1500 MILLIGRAM
     Route: 065
  3. FURIX [Concomitant]
     Active Substance: FUROSEMIDE
     Indication: OEDEMA
     Dosage: 75 MILLIGRAM
     Route: 065
     Dates: start: 20160518
  4. SIMVASTATIN. [Concomitant]
     Active Substance: SIMVASTATIN
     Indication: BLOOD CHOLESTEROL INCREASED
     Route: 065
     Dates: start: 20140211
  5. KODIMAGNYL [Concomitant]
     Indication: PAIN
     Dosage: 360 MILLIGRAM
     Route: 048
     Dates: start: 20160321
  6. REVLIMID [Suspect]
     Active Substance: LENALIDOMIDE
     Indication: MYELODYSPLASTIC SYNDROME
     Dosage: 10 MILLIGRAM
     Route: 048
     Dates: start: 20160510
  7. MABLET [Concomitant]
     Indication: MAGNESIUM DEFICIENCY
     Route: 065
     Dates: start: 20151203
  8. LISINOPRIL AND HYDROCHLOROTHIAZIDE [Concomitant]
     Active Substance: HYDROCHLOROTHIAZIDE\LISINOPRIL
     Indication: HYPERTENSION
     Dosage: 20+12.5
     Route: 065
     Dates: start: 20130412
  9. KALEORID [Concomitant]
     Active Substance: POTASSIUM CHLORIDE
     Indication: OEDEMA
     Dosage: 1000 MILLIGRAM
     Route: 065
     Dates: start: 20160518
  10. BUFOMIX EASYHALER [Concomitant]
     Indication: ASTHMA
     Dosage: 9+320
     Route: 065
     Dates: start: 20160309
  11. ALENDRONAT [Concomitant]
     Active Substance: ALENDRONATE SODIUM
     Indication: OSTEOPOROSIS PROPHYLAXIS
     Dosage: 40 MICROGRAM
     Route: 065
     Dates: start: 20140930
  12. BIOCLAVID [Concomitant]
     Active Substance: AMOXICILLIN\CLAVULANIC ACID
     Indication: COUGH
     Dosage: 70 MILLIGRAM
     Route: 065
     Dates: start: 20160518
  13. APOVIT VITAMIN C [Concomitant]
     Indication: VITAMIN SUPPLEMENTATION
     Dosage: 24 DOSAGE FORMS
     Route: 065
     Dates: start: 20140211
  14. CLOPIDOGREL [Concomitant]
     Active Substance: CLOPIDOGREL BISULFATE
     Indication: PROPHYLAXIS
     Dosage: 5 MILLIGRAM
     Route: 065
     Dates: start: 20141209
  15. SELEXID [Concomitant]
     Active Substance: AMDINOCILLIN PIVOXIL HYDROCHLORIDE
     Indication: CYSTITIS
     Dosage: 50 MICROGRAM
     Route: 065
     Dates: start: 20160316, end: 20160321
  16. ELTROXIN [Concomitant]
     Active Substance: LEVOTHYROXINE
     Indication: PROPHYLAXIS
     Route: 065
     Dates: start: 20140211
  17. AMLODIPIN [Concomitant]
     Active Substance: AMLODIPINE BESYLATE
     Indication: BLOOD PRESSURE MEASUREMENT
     Route: 065
     Dates: start: 20140211
  18. NOVORAPID [Concomitant]
     Active Substance: INSULIN ASPART
     Indication: DIABETES MELLITUS
     Dosage: 24 IE
     Route: 065
     Dates: start: 20140211
  19. LATANOPROST. [Concomitant]
     Active Substance: LATANOPROST
     Indication: EYE DISORDER
     Route: 065
     Dates: start: 20140211

REACTIONS (4)
  - Muscle spasms [Recovering/Resolving]
  - Apnoea [Not Recovered/Not Resolved]
  - Headache [Recovering/Resolving]
  - Palpitations [Recovered/Resolved]

NARRATIVE: CASE EVENT DATE: 20160608
